FAERS Safety Report 10085777 (Version 1)
Quarter: 2014Q2

REPORT INFORMATION
  Report Type: Spontaneous
  Country: US (occurrence: US)
  Receive Date: 20140418
  Receipt Date: 20140418
  Transmission Date: 20141212
  Serious: No
  Sender: FDA-Public Use
  Company Number: US-PFIZER INC-2014107180

PATIENT
  Age: 54 Year
  Sex: Female
  Weight: 72.56 kg

DRUGS (5)
  1. CHANTIX [Suspect]
     Indication: SMOKING CESSATION THERAPY
     Dosage: UNK
     Route: 048
     Dates: start: 20140329, end: 2014
  2. CHANTIX [Suspect]
     Dosage: UNK, 2X/DAY
     Route: 048
     Dates: start: 2014
  3. CELEXA [Concomitant]
     Indication: AGGRESSION
     Dosage: 10 MG IN A DAY
  4. METFORMIN [Concomitant]
     Indication: LIVER DISORDER
     Dosage: 500 MG, 2X/DAY
  5. LOSARTAN [Concomitant]
     Indication: HYPERTENSION
     Dosage: 25 MG, 1X/DAY

REACTIONS (2)
  - Agitation [Not Recovered/Not Resolved]
  - Thinking abnormal [Not Recovered/Not Resolved]
